FAERS Safety Report 19373282 (Version 4)
Quarter: 2022Q3

REPORT INFORMATION
  Report Type: Spontaneous
  Country: JP (occurrence: JP)
  Receive Date: 20210604
  Receipt Date: 20220714
  Transmission Date: 20221027
  Serious: Yes (Hospitalization, Other)
  Sender: FDA-Public Use
  Company Number: JP-GLAXOSMITHKLINE-JP2021JPN116609

PATIENT

DRUGS (10)
  1. BENLYSTA [Suspect]
     Active Substance: BELIMUMAB
     Indication: Systemic lupus erythematosus
     Dosage: 200 MG, WE
     Dates: start: 20181002, end: 20210413
  2. PREDNISOLONE [Suspect]
     Active Substance: PREDNISOLONE
     Indication: Systemic lupus erythematosus
     Dosage: 5 MG, QD, IN THE MORNING
     Dates: start: 20170926, end: 20210414
  3. METHYLPREDNISOLONE [Concomitant]
     Active Substance: METHYLPREDNISOLONE
     Dosage: 500 MG, QD
     Dates: start: 20210415, end: 20210416
  4. PREDNISOLONE SODIUM SUCCINATE [Concomitant]
     Active Substance: PREDNISOLONE SODIUM SUCCINATE
     Dosage: 80 MG/DAY, BID, IN THE MORNING AND EVENING
     Dates: start: 20210417, end: 20210429
  5. PREDNISOLONE SODIUM SUCCINATE [Concomitant]
     Active Substance: PREDNISOLONE SODIUM SUCCINATE
     Dosage: 60 MG/DAY, BID, IN THE MORNING AND EVENING
     Dates: start: 20210430, end: 20210430
  6. PREDONINE [Concomitant]
     Active Substance: PREDNISOLONE
     Dosage: 40 MG/DAY, (15MG, 15MG, 10MG), TID
     Dates: start: 20210501, end: 20210512
  7. PREDONINE [Concomitant]
     Active Substance: PREDNISOLONE
     Dosage: 15 MG, BID, IN THE MORNING AND EVENING
     Dates: start: 20210513, end: 20210531
  8. PREDONINE [Concomitant]
     Active Substance: PREDNISOLONE
     Dosage: 10 MG, BID
     Dates: start: 20210601, end: 20210614
  9. PREDONINE [Concomitant]
     Active Substance: PREDNISOLONE
     Dosage: 15MG/DAY(10MG, 5MG), IN THE MORNING AND NOON, BID
     Dates: start: 20210615, end: 20210628
  10. PREDONINE [Concomitant]
     Active Substance: PREDNISOLONE
     Dosage: 12.5 MG/DAY (10 MG, 2.5 MG), BID
     Dates: start: 20210629

REACTIONS (5)
  - Systemic lupus erythematosus [Unknown]
  - Nephrotic syndrome [Recovering/Resolving]
  - Urine abnormality [Unknown]
  - Hypoalbuminaemia [Unknown]
  - Therapeutic response decreased [Unknown]

NARRATIVE: CASE EVENT DATE: 20210301
